FAERS Safety Report 24368014 (Version 1)
Quarter: 2024Q3

REPORT INFORMATION
  Report Type: Spontaneous
  Country: US (occurrence: US)
  Receive Date: 20240926
  Receipt Date: 20240926
  Transmission Date: 20241017
  Serious: Yes (Hospitalization)
  Sender: EISAI
  Company Number: US-Eisai-EC-2024-174821

PATIENT

DRUGS (2)
  1. LEQEMBI [Suspect]
     Active Substance: LECANEMAB-IRMB
     Indication: Product used for unknown indication
     Dosage: DOSE UNKNOWN
     Route: 042
  2. LEQEMBI [Suspect]
     Active Substance: LECANEMAB-IRMB
     Dosage: 12TH INFUSION (DOSE UNKNOWN)
     Route: 042

REACTIONS (1)
  - Amyloid related imaging abnormality-oedema/effusion [Unknown]
